FAERS Safety Report 9268351 (Version 1)
Quarter: 2013Q2

REPORT INFORMATION
  Report Type: Spontaneous
  Country: US (occurrence: US)
  Receive Date: 20130502
  Receipt Date: 20130502
  Transmission Date: 20140414
  Serious: No
  Sender: FDA-Public Use
  Company Number: US-TEVA-402729USA

PATIENT
  Age: 37 Year
  Sex: Female
  Weight: 72.64 kg

DRUGS (3)
  1. PLAN B ONE-STEP [Suspect]
     Indication: POST COITAL CONTRACEPTION
     Dosage: 1.5 MILLIGRAM DAILY;
     Route: 048
     Dates: start: 20130417, end: 20130417
  2. SPIRONOLACTONE [Concomitant]
     Indication: ACNE CYSTIC
  3. IMIQUIMOD CREAM [Concomitant]
     Indication: ANOGENITAL WARTS

REACTIONS (5)
  - Papilloma viral infection [Not Recovered/Not Resolved]
  - Smear cervix abnormal [Not Recovered/Not Resolved]
  - Back pain [Recovered/Resolved]
  - Abdominal distension [Recovered/Resolved]
  - Menstruation irregular [Not Recovered/Not Resolved]
